FAERS Safety Report 11427308 (Version 1)
Quarter: 2015Q3

REPORT INFORMATION
  Report Type: Spontaneous
  Country: US (occurrence: US)
  Receive Date: 20150827
  Receipt Date: 20150827
  Transmission Date: 20151125
  Serious: No
  Sender: FDA-Public Use
  Company Number: US-SA-2014SA155554

PATIENT
  Age: 44 Year
  Sex: Female
  Weight: 66 kg

DRUGS (9)
  1. DOXAZOSIN MESILATE [Concomitant]
     Active Substance: DOXAZOSIN MESYLATE
  2. DIOVAN [Concomitant]
     Active Substance: VALSARTAN
  3. FABRAZYME [Suspect]
     Active Substance: AGALSIDASE BETA
     Indication: FABRY^S DISEASE
     Route: 041
     Dates: start: 20050122
  4. ARANESP [Concomitant]
     Active Substance: DARBEPOETIN ALFA
     Dates: start: 20080528, end: 20080528
  5. FERROUS GLUCONATE [Concomitant]
     Active Substance: FERROUS GLUCONATE
     Dosage: 2 TABLETS
     Route: 048
  6. GABAPENTIN. [Concomitant]
     Active Substance: GABAPENTIN
  7. NORVASC [Concomitant]
     Active Substance: AMLODIPINE BESYLATE
  8. ALLOPURINOL. [Concomitant]
     Active Substance: ALLOPURINOL
  9. BUMEX [Concomitant]
     Active Substance: BUMETANIDE

REACTIONS (5)
  - Nausea [Unknown]
  - Nasopharyngitis [Unknown]
  - Insomnia [Unknown]
  - Chills [Unknown]
  - Burning sensation [Unknown]

NARRATIVE: CASE EVENT DATE: 200808
